FAERS Safety Report 18499602 (Version 1)
Quarter: 2020Q4

REPORT INFORMATION
  Report Type: Other
  Country: CA (occurrence: CA)
  Receive Date: 20201112
  Receipt Date: 20201112
  Transmission Date: 20210114
  Serious: Yes (Hospitalization)
  Sender: FDA-Public Use
  Company Number: CA-CELLTRION INC.-2020CA030768

PATIENT

DRUGS (14)
  1. DIPHENHYDRAMINE. [Concomitant]
     Active Substance: DIPHENHYDRAMINE
     Indication: PREMEDICATION
     Dosage: 50.0 MILLIGRAM
     Route: 048
  2. DIPHENHYDRAMINE. [Concomitant]
     Active Substance: DIPHENHYDRAMINE
     Dosage: 25.0 MILLIGRAM
     Route: 048
  3. METHYLPREDNISOLONE. [Concomitant]
     Active Substance: METHYLPREDNISOLONE
     Indication: PREMEDICATION
     Dosage: 100.0 MILLIGRAM
     Route: 042
  4. ZOMIG [Concomitant]
     Active Substance: ZOLMITRIPTAN
  5. RITUXIMAB (UNKNOWN) [Suspect]
     Active Substance: RITUXIMAB
     Indication: RELAPSING-REMITTING MULTIPLE SCLEROSIS
     Dosage: 1000.0 MILLIGRAM
     Route: 042
  6. ACETAMINOPHEN. [Concomitant]
     Active Substance: ACETAMINOPHEN
     Indication: PREMEDICATION
     Dosage: 650.0 MILLIGRAM
     Route: 048
  7. IPRATROPIUM [Concomitant]
     Active Substance: IPRATROPIUM
  8. TOPAMAX [Concomitant]
     Active Substance: TOPIRAMATE
  9. AUBAGIO [Concomitant]
     Active Substance: TERIFLUNOMIDE
  10. CYMBALTA [Concomitant]
     Active Substance: DULOXETINE HYDROCHLORIDE
  11. GABAPENTIN. [Concomitant]
     Active Substance: GABAPENTIN
  12. ALIGN [Concomitant]
     Active Substance: BIFIDOBACTERIUM LONGUM SUBSP. INFANTIS
     Route: 065
  13. BACLOFEN. [Concomitant]
     Active Substance: BACLOFEN
  14. CRANBERRY [VACCINIUM SPP.] [Concomitant]
     Active Substance: CRANBERRY

REACTIONS (8)
  - Body temperature increased [Recovered/Resolved]
  - Off label use [Recovered/Resolved]
  - Blood pressure diastolic abnormal [Recovered/Resolved]
  - Heart rate increased [Recovered/Resolved]
  - Blood pressure systolic decreased [Recovered/Resolved]
  - Product use in unapproved indication [Recovered/Resolved]
  - Ill-defined disorder [Recovered/Resolved]
  - Urinary tract infection [Recovered/Resolved]
